FAERS Safety Report 10675751 (Version 1)
Quarter: 2014Q4

REPORT INFORMATION
  Report Type: Report from Study
  Country: US (occurrence: US)
  Receive Date: 20141224
  Receipt Date: 20141224
  Transmission Date: 20150529
  Serious: No
  Sender: FDA-Public Use
  Company Number: US-AMGEN INC.-USASL2014100173

PATIENT
  Age: 66 Year
  Sex: Female

DRUGS (1)
  1. ENBREL [Suspect]
     Active Substance: ETANERCEPT
     Indication: RHEUMATOID ARTHRITIS
     Dosage: 50 MG, QWK
     Route: 058
     Dates: start: 2000

REACTIONS (4)
  - Injection site pruritus [Unknown]
  - Injection site rash [Unknown]
  - Bronchitis [Unknown]
  - Injection site reaction [Unknown]

NARRATIVE: CASE EVENT DATE: 201403
